FAERS Safety Report 4799018-9 (Version None)
Quarter: 2005Q4

REPORT INFORMATION
  Report Type: 
  Country: None (occurrence: None)
  Receive Date: 20051013
  Receipt Date: 20050927
  Transmission Date: 20060501
  Serious: Yes (Hospitalization, Disabling)
  Sender: FDA-Public Use
  Company Number: 400579

PATIENT
  Age: 24 Year
  Sex: Male
  Weight: 93.9 kg

DRUGS (39)
  1. ACCUTANE [Suspect]
     Indication: ACNE
     Dosage: 40 MG 2 PER DAY ORAL
     Route: 048
     Dates: start: 19890615
  2. BACTRIM DS [Concomitant]
  3. RETIN-A [Concomitant]
  4. PANOXYL (BENZOYL PEROXIDE) [Concomitant]
  5. BACTROBAN [Concomitant]
  6. BENZAC 5 (BENZOYL PEROXIDE) [Concomitant]
  7. KENALOG-10 [Concomitant]
  8. METROGEL [Concomitant]
  9. SPECTAZOLE [Concomitant]
  10. DIFLUCAN [Concomitant]
  11. ERYTHROMYCIN [Concomitant]
  12. CLEOCIN [Concomitant]
  13. NIZORAL [Concomitant]
  14. LIDEX (FLUCINONIDE) [Concomitant]
  15. CIPRO [Concomitant]
  16. BROMFED (BROMPHENIRAMINE MALEATE/PSEUDOEPHEDRINE HYDROCHLORIDE) [Concomitant]
  17. METAMUCIL (PSYLLIUM HUSK) [Concomitant]
  18. GAS-X (SIMETHICONE) [Concomitant]
  19. MYLANTA PLUS (ALGINIC ACID/ALUMINUM HYROXIDE/CALCIUM CARBONATE/MAGNESI [Concomitant]
  20. GENERIC  (GENERIC) [Concomitant]
  21. KEFLEX [Concomitant]
  22. ANTIBIOTICS [Concomitant]
  23. LEVAQUIN [Concomitant]
  24. DURATUSS [Concomitant]
  25. ZITHROMAX [Concomitant]
  26. BENADRYL [Concomitant]
  27. TUSSIONEX [Concomitant]
  28. DOXYCYCLINE [Concomitant]
  29. LORTAB [Concomitant]
  30. ALLEGRA [Concomitant]
  31. IBUPROFEN [Concomitant]
  32. SUDAFED 12 HOUR [Concomitant]
  33. NIACIN [Concomitant]
  34. SEPTRA DS [Concomitant]
  35. MOTRIN [Concomitant]
  36. DESOWEN [Concomitant]
  37. LOPROX [Concomitant]
  38. ACNE MEDICATION [Concomitant]
  39. CEPHALEXIN [Concomitant]

REACTIONS (71)
  - ABDOMINAL PAIN [None]
  - ACNE [None]
  - ACNE CYSTIC [None]
  - ADENOMATOUS POLYPOSIS COLI [None]
  - ALANINE AMINOTRANSFERASE INCREASED [None]
  - ANAEMIA [None]
  - ANAL FISTULA [None]
  - ANAL HAEMORRHAGE [None]
  - APHTHOUS STOMATITIS [None]
  - ARTERIOSCLEROSIS [None]
  - ARTHRALGIA [None]
  - ASPARTATE AMINOTRANSFERASE INCREASED [None]
  - BACK PAIN [None]
  - BEHCET'S SYNDROME [None]
  - BLOOD ALKALINE PHOSPHATASE INCREASED [None]
  - BLOOD CHOLESTEROL INCREASED [None]
  - BLOOD DISORDER [None]
  - BLOOD TRIGLYCERIDES INCREASED [None]
  - BONE DISORDER [None]
  - BONE PAIN [None]
  - CARDIAC DISORDER [None]
  - CHEST PAIN [None]
  - CHILLS [None]
  - CONDITION AGGRAVATED [None]
  - CROHN'S DISEASE [None]
  - DECREASED APPETITE [None]
  - DERMATITIS ACNEIFORM [None]
  - DIARRHOEA HAEMORRHAGIC [None]
  - DISEASE RECURRENCE [None]
  - DIZZINESS [None]
  - DRUG INEFFECTIVE [None]
  - FATIGUE [None]
  - FLANK PAIN [None]
  - FURUNCLE [None]
  - GASTROINTESTINAL DISORDER [None]
  - GASTROINTESTINAL HAEMORRHAGE [None]
  - GROIN PAIN [None]
  - HAEMATOCHEZIA [None]
  - HIDRADENITIS [None]
  - ILEITIS [None]
  - INFLAMMATORY BOWEL DISEASE [None]
  - INTESTINAL ULCER [None]
  - IRRITABLE BOWEL SYNDROME [None]
  - LIMB INJURY [None]
  - MALABSORPTION [None]
  - MELANOCYTIC NAEVUS [None]
  - MULTI-ORGAN DISORDER [None]
  - MUSCULOSKELETAL DISCOMFORT [None]
  - MYALGIA [None]
  - NAIL DISORDER [None]
  - NECK PAIN [None]
  - NIGHT BLINDNESS [None]
  - PAIN IN EXTREMITY [None]
  - PHARYNGEAL LESION [None]
  - PSEUDOFOLLICULITIS BARBAE [None]
  - PYREXIA [None]
  - ROAD TRAFFIC ACCIDENT [None]
  - ROSACEA [None]
  - SCAR [None]
  - SKIN DISORDER [None]
  - SKIN FISSURES [None]
  - SKIN LACERATION [None]
  - SKIN NODULE [None]
  - SKIN PAPILLOMA [None]
  - STAPHYLOCOCCAL INFECTION [None]
  - SWEAT GLAND INFECTION [None]
  - THERAPY NON-RESPONDER [None]
  - TINEA INFECTION [None]
  - TONGUE ULCERATION [None]
  - VIRAL UPPER RESPIRATORY TRACT INFECTION [None]
  - VISUAL DISTURBANCE [None]
